FAERS Safety Report 8799415 (Version 1)
Quarter: 2012Q4

REPORT INFORMATION
  Report Type: 
  Country: US (occurrence: US)
  Receive Date: 20120919
  Receipt Date: 20120919
  Transmission Date: 20130627
  Serious: No
  Sender: FDA-Public Use
  Company Number: US-B.I. PHARMACEUTICALS,INC./RIDGEFIELD-2012-BP-22422BP

PATIENT
  Age: 75 Year
  Sex: Male

DRUGS (1)
  1. TRADJENTA [Suspect]
     Dates: start: 2012, end: 2012

REACTIONS (3)
  - Hypoglycaemia [Unknown]
  - Dizziness [Unknown]
  - Disorientation [Unknown]
